FAERS Safety Report 6192018-6 (Version None)
Quarter: 2009Q2

REPORT INFORMATION
  Report Type: 
  Country: None (occurrence: None)
  Receive Date: 20090515
  Receipt Date: 20090511
  Transmission Date: 20091009
  Serious: Yes (Hospitalization)
  Sender: FDA-Public Use
  Company Number: D0061600A

PATIENT
  Age: 73 Year
  Sex: Male
  Weight: 65 kg

DRUGS (3)
  1. CEFUROXIM SODIUM [Suspect]
     Indication: PYELONEPHRITIS
     Dosage: 1.5G THREE TIMES PER DAY
     Route: 042
     Dates: start: 20090331, end: 20090406
  2. CEFUHEXAL [Suspect]
     Indication: PYELONEPHRITIS
     Dosage: 500MG TWICE PER DAY
     Route: 048
     Dates: start: 20090407, end: 20090411
  3. CEFUROXIME [Suspect]
     Indication: PYELONEPHRITIS
     Dosage: 250MG TWICE PER DAY
     Route: 048
     Dates: start: 20090413, end: 20090414

REACTIONS (3)
  - DIARRHOEA [None]
  - ENTERITIS [None]
  - HYPOKALAEMIA [None]
